FAERS Safety Report 6915173-6 (Version None)
Quarter: 2010Q3

REPORT INFORMATION
  Report Type: 
  Country: None (occurrence: None)
  Receive Date: 20100805
  Receipt Date: 20100805
  Transmission Date: 20110219
  Serious: Yes (Other)
  Sender: FDA-Public Use
  Company Number: None

PATIENT
  Sex: Male
  Weight: 71.6683 kg

DRUGS (1)
  1. JANUVIA [Suspect]
     Indication: TYPE 2 DIABETES MELLITUS
     Dosage: 100 MG ONCE DAILY PO
     Route: 048
     Dates: start: 20100625, end: 20100727

REACTIONS (5)
  - BLOOD GLUCOSE DECREASED [None]
  - HAEMORRHAGE [None]
  - SCRATCH [None]
  - SKIN DISCOLOURATION [None]
  - SKIN EXFOLIATION [None]
